FAERS Safety Report 24434620 (Version 2)
Quarter: 2024Q4

REPORT INFORMATION
  Report Type: Spontaneous
  Country: FR (occurrence: FR)
  Receive Date: 20241014
  Receipt Date: 20241122
  Transmission Date: 20250115
  Serious: Yes (Hospitalization)
  Sender: MYLAN
  Company Number: FR-MYLANLABS-2024M1090466

PATIENT
  Age: 57 Year
  Sex: Female

DRUGS (2)
  1. ETOPOSIDE [Suspect]
     Active Substance: ETOPOSIDE
     Indication: Small cell lung cancer
     Dosage: UNK
     Route: 065
     Dates: start: 20240910
  2. ETOPOSIDE [Suspect]
     Active Substance: ETOPOSIDE
     Dosage: 180 MILLIGRAM
     Route: 042
     Dates: start: 20241001, end: 20241001

REACTIONS (3)
  - Incorrect dose administered [Unknown]
  - Product deposit [Unknown]
  - Product preparation issue [Unknown]

NARRATIVE: CASE EVENT DATE: 20241001
